FAERS Safety Report 8273860-4 (Version None)
Quarter: 2012Q2

REPORT INFORMATION
  Report Type: 
  Country: None (occurrence: None)
  Receive Date: 20120411
  Receipt Date: 20120405
  Transmission Date: 20120825
  Serious: Yes (Death, Hospitalization)
  Sender: FDA-Public Use
  Company Number: JP-CELGENEUS-087-50794-12040743

PATIENT
  Sex: Male
  Weight: 72 kg

DRUGS (10)
  1. DIFLUCAN [Concomitant]
     Route: 065
     Dates: start: 20111207, end: 20120131
  2. FEBURIC [Concomitant]
     Route: 065
     Dates: start: 20120111, end: 20120131
  3. LEVOFLOXACIN [Concomitant]
     Route: 065
     Dates: start: 20111214, end: 20120131
  4. LASIX [Concomitant]
     Route: 065
     Dates: start: 20111221, end: 20120131
  5. MOBIC [Concomitant]
     Route: 065
     Dates: start: 20111202, end: 20120131
  6. GRANISETRON HCL [Concomitant]
     Route: 065
     Dates: start: 20120119, end: 20120131
  7. MEROPENEM [Concomitant]
     Dosage: 1.5 GRAM
     Route: 065
     Dates: start: 20120126, end: 20120131
  8. FAMOTIDINE [Concomitant]
     Route: 065
     Dates: start: 20111019, end: 20120131
  9. VIDAZA [Suspect]
     Dosage: 75 MILLIGRAM/SQ. METER
     Route: 041
     Dates: start: 20120119, end: 20120125
  10. GLAKAY [Concomitant]
     Route: 065
     Dates: start: 20111202, end: 20120131

REACTIONS (2)
  - CELLULITIS [None]
  - CARDIAC TAMPONADE [None]
